FAERS Safety Report 19762726 (Version 1)
Quarter: 2021Q3

REPORT INFORMATION
  Report Type: Spontaneous
  Country: US (occurrence: US)
  Receive Date: 20210825
  Receipt Date: 20210825
  Transmission Date: 20211014
  Serious: No
  Sender: FDA-Public Use
  Company Number: None

PATIENT
  Sex: Female

DRUGS (8)
  1. FORTEO [Suspect]
     Active Substance: TERIPARATIDE
     Indication: RHEUMATOID ARTHRITIS
     Dosage: ?          OTHER STRENGTH:250MCG/ML;?
     Route: 058
     Dates: start: 201906
  2. FORTEO [Suspect]
     Active Substance: TERIPARATIDE
     Indication: OSTEOARTHRITIS
     Dosage: ?          OTHER STRENGTH:250MCG/ML;?
     Route: 058
     Dates: start: 201906
  3. TREMFYA [Suspect]
     Active Substance: GUSELKUMAB
     Indication: PSORIATIC ARTHROPATHY
     Dosage: ?          OTHER FREQUENCY:EVERY 8 WEEKS;?
     Route: 058
     Dates: start: 20201201
  4. TREMFYA [Suspect]
     Active Substance: GUSELKUMAB
     Indication: RHEUMATOID ARTHRITIS
     Dosage: ?          OTHER FREQUENCY:EVERY 8 WEEKS;?
     Route: 058
     Dates: start: 20201201
  5. FORTEO [Suspect]
     Active Substance: TERIPARATIDE
     Indication: PSORIATIC ARTHROPATHY
     Dosage: ?          OTHER STRENGTH:250MCG/ML;?
     Route: 058
     Dates: start: 201906
  6. FORTEO [Suspect]
     Active Substance: TERIPARATIDE
     Indication: SENILE OSTEOPOROSIS
     Dosage: ?          OTHER STRENGTH:250MCG/ML;?
     Route: 058
     Dates: start: 201906
  7. TREMFYA [Suspect]
     Active Substance: GUSELKUMAB
     Indication: SENILE OSTEOPOROSIS
     Dosage: ?          OTHER FREQUENCY:EVERY 8 WEEKS;?
     Route: 058
     Dates: start: 20201201
  8. TREMFYA [Suspect]
     Active Substance: GUSELKUMAB
     Indication: OSTEOARTHRITIS
     Dosage: ?          OTHER FREQUENCY:EVERY 8 WEEKS;?
     Route: 058
     Dates: start: 20201201

REACTIONS (4)
  - Pain [None]
  - Pruritus [None]
  - Therapy non-responder [None]
  - Burning sensation [None]
